FAERS Safety Report 7519835-1 (Version None)
Quarter: 2011Q2

REPORT INFORMATION
  Report Type: 
  Country: None (occurrence: None)
  Receive Date: 20110602
  Receipt Date: 20110523
  Transmission Date: 20111010
  Serious: Yes (Death)
  Sender: FDA-Public Use
  Company Number: FR-UCBSA-033660

PATIENT
  Age: 85 Year
  Sex: Female

DRUGS (4)
  1. UNSPECIFIED BETA-ADRENERGIC BLOCKING DRUG [Concomitant]
     Route: 048
  2. KEPPRA [Suspect]
     Indication: AGITATION
     Route: 048
  3. RISPERDAL [Concomitant]
     Indication: AGITATION
     Route: 048
  4. EXELON [Concomitant]
     Route: 048

REACTIONS (1)
  - MYOCARDIAL INFARCTION [None]
